FAERS Safety Report 17192214 (Version 1)
Quarter: 2019Q4

REPORT INFORMATION
  Report Type: Report from Study
  Country: IL (occurrence: IL)
  Receive Date: 20191223
  Receipt Date: 20191223
  Transmission Date: 20200122
  Serious: Yes (Other)
  Sender: FDA-Public Use
  Company Number: IL-BAXTER-2019BAX025661

PATIENT
  Sex: Female

DRUGS (3)
  1. ENDOXAN-1G [Suspect]
     Active Substance: CYCLOPHOSPHAMIDE
     Indication: BREAST CANCER
     Dosage: AC WITH GROWTH FACTOR SUPPORT EVERY 14 DAYS?4 CYCLES
     Route: 042
  2. PACLITAXEL. [Suspect]
     Active Substance: PACLITAXEL
     Indication: BREAST CANCER
     Dosage: 12 DOSES
     Route: 042
  3. DOXORUBICIN [Suspect]
     Active Substance: DOXORUBICIN
     Indication: BREAST CANCER
     Dosage: AC WITH GROWTH FACTOR SUPPORT EVERY 14 DAYS?4 CYCLES
     Route: 042

REACTIONS (2)
  - Second primary malignancy [Unknown]
  - Adenocarcinoma pancreas [Unknown]
